FAERS Safety Report 5158477-2 (Version None)
Quarter: 2006Q4

REPORT INFORMATION
  Report Type: 
  Country: None (occurrence: None)
  Receive Date: 20061128
  Receipt Date: 20061002
  Transmission Date: 20070319
  Serious: Yes (Death)
  Sender: FDA-Public Use
  Company Number: US-PURDUE-USA_2006_0025312

PATIENT
  Age: 49 Year
  Sex: Male

DRUGS (12)
  1. OXYCONTIN [Suspect]
     Indication: DRUG USE FOR UNKNOWN INDICATION
     Dosage: UNK, UNK
  2. ACETAMINOPHEN [Suspect]
     Indication: DRUG USE FOR UNKNOWN INDICATION
     Dosage: UNK, UNK
  3. ETHANOL [Suspect]
     Indication: DRUG USE FOR UNKNOWN INDICATION
  4. HYDROCODONE [Suspect]
     Indication: DRUG USE FOR UNKNOWN INDICATION
  5. DIHYDROCODEINE/CAFFEINE/ACETAMINOPHEN (SIMILAR TO ANDA 88-584) [Suspect]
     Indication: DRUG USE FOR UNKNOWN INDICATION
  6. PAROXETINE HCL [Suspect]
     Indication: DRUG USE FOR UNKNOWN INDICATION
  7. ZOLPIDEM TARTRATE [Suspect]
     Indication: DRUG USE FOR UNKNOWN INDICATION
  8. PROCHLORPERAZINE [Suspect]
     Indication: DRUG USE FOR UNKNOWN INDICATION
  9. TRIMETHOPRIM [Suspect]
     Indication: DRUG USE FOR UNKNOWN INDICATION
  10. ATROPINE [Suspect]
     Indication: DRUG USE FOR UNKNOWN INDICATION
  11. NICOTINE [Suspect]
     Indication: DRUG USE FOR UNKNOWN INDICATION
  12. CAFFEINE [Suspect]
     Indication: DRUG USE FOR UNKNOWN INDICATION

REACTIONS (16)
  - ACCIDENTAL DEATH [None]
  - ATELECTASIS [None]
  - CARDIAC ARREST [None]
  - CARDIO-RESPIRATORY ARREST [None]
  - COLD SWEAT [None]
  - DRUG TOXICITY [None]
  - ELECTROMECHANICAL DISSOCIATION [None]
  - HYPOVENTILATION [None]
  - LIVEDO RETICULARIS [None]
  - MULTIPLE DRUG OVERDOSE ACCIDENTAL [None]
  - OBESITY [None]
  - RESPIRATORY DEPRESSION [None]
  - RESPIRATORY DISORDER [None]
  - SNORING [None]
  - SOMNOLENCE [None]
  - UNRESPONSIVE TO STIMULI [None]
